FAERS Safety Report 6344338-X (Version None)
Quarter: 2009Q3

REPORT INFORMATION
  Report Type: 
  Country: None (occurrence: None)
  Receive Date: 20090821
  Receipt Date: 20090429
  Transmission Date: 20100115
  Serious: No
  Sender: FDA-Public Use
  Company Number: 8045530

PATIENT
  Age: 50 Year
  Sex: Female
  Weight: 114.5 kg

DRUGS (10)
  1. CIMZIA [Suspect]
     Indication: CROHN'S DISEASE
     Dosage: 400 MG SC
     Route: 058
     Dates: start: 20090415
  2. OMEPRAZOLE [Concomitant]
  3. BENICAR [Concomitant]
  4. LIPITOR [Concomitant]
  5. FUROSEMIDE [Concomitant]
  6. AMLODIPINE BESYLATE AND BENAZEPRIL HCL [Concomitant]
  7. NORVASC [Concomitant]
  8. PROMETHAZINE [Concomitant]
  9. DIPHENOXYLATE [Concomitant]
  10. VITAMINS [Concomitant]

REACTIONS (1)
  - INJECTION SITE REACTION [None]
